FAERS Safety Report 9166437 (Version 1)
Quarter: 2013Q1

REPORT INFORMATION
  Report Type: Spontaneous
  Country: US (occurrence: US)
  Receive Date: 20130315
  Receipt Date: 20130315
  Transmission Date: 20140127
  Serious: Yes (Disabling, Other)
  Sender: FDA-Public Use
  Company Number: US-TEVA-391497USA

PATIENT
  Sex: Male
  Weight: 8.17 kg

DRUGS (9)
  1. TRAMADOL [Suspect]
     Indication: PAIN
     Route: 048
     Dates: start: 2012, end: 2012
  2. TRIPOLINE [Suspect]
     Indication: PAIN
     Dates: start: 2011
  3. NUCYNTA [Suspect]
     Indication: PAIN
     Dosage: 300 MILLIGRAM DAILY;
     Route: 048
     Dates: start: 201111, end: 201210
  4. NUCYNTA [Suspect]
     Dosage: 200 MILLIGRAM DAILY;
     Route: 048
     Dates: start: 201211
  5. HYDROCODONE [Suspect]
     Indication: PAIN
     Route: 048
     Dates: start: 201110, end: 201211
  6. AMITRIPTYLINE [Suspect]
     Indication: PAIN
     Dates: start: 2012
  7. DULOXETINE HYDROCHLORIDE [Concomitant]
     Dosage: 120 MILLIGRAM DAILY;
     Dates: start: 201210
  8. TOPIRAMATE [Concomitant]
     Indication: PAIN
     Route: 048
     Dates: start: 2012
  9. UNSPECIFIED BLOOD PRESSURE MEDICATION [Concomitant]
     Indication: BLOOD PRESSURE

REACTIONS (12)
  - Disability [Not Recovered/Not Resolved]
  - Neuropathy peripheral [Not Recovered/Not Resolved]
  - Drug ineffective [Not Recovered/Not Resolved]
  - Gait disturbance [Unknown]
  - Incorrect dose administered [Not Recovered/Not Resolved]
  - Dysuria [Unknown]
  - Diarrhoea [Not Recovered/Not Resolved]
  - Constipation [Recovered/Resolved]
  - Dyspepsia [Unknown]
  - Insomnia [Not Recovered/Not Resolved]
  - Pruritus [Not Recovered/Not Resolved]
  - Wrong technique in drug usage process [Not Recovered/Not Resolved]
